FAERS Safety Report 7715552-3 (Version None)
Quarter: 2011Q3

REPORT INFORMATION
  Report Type: 
  Country: None (occurrence: None)
  Receive Date: 20110829
  Receipt Date: 20110818
  Transmission Date: 20111222
  Serious: Yes (Other)
  Sender: FDA-Public Use
  Company Number: US-AMGEN-USASP2011033450

PATIENT
  Age: 39 Year
  Sex: Female

DRUGS (5)
  1. ENBREL [Suspect]
     Indication: PSORIASIS
     Dosage: 50 MG, QWK
     Dates: start: 20101201
  2. CLOMID [Concomitant]
     Dosage: UNK
     Dates: start: 20020101
  3. ENBREL [Suspect]
     Dosage: 50 MG, QWK
     Dates: start: 20090101, end: 20090801
  4. ENBREL [Suspect]
     Dosage: 50 MG, 2 TIMES/WK
     Dates: start: 20070101
  5. SYNTHROID [Concomitant]
     Dosage: 145 MUG, QD
     Dates: start: 19890101

REACTIONS (2)
  - MULTIPLE PREGNANCY [None]
  - ABORTION SPONTANEOUS [None]
